FAERS Safety Report 9901731 (Version 1)
Quarter: 2014Q1

REPORT INFORMATION
  Report Type: Report from Study
  Country: NL (occurrence: NL)
  Receive Date: 20140217
  Receipt Date: 20140217
  Transmission Date: 20141002
  Serious: Yes (Life-Threatening)
  Sender: FDA-Public Use
  Company Number: PHHY2014NL017575

PATIENT
  Age: 80 Year
  Sex: Female

DRUGS (4)
  1. ZOMETA [Suspect]
     Indication: BREAST CANCER METASTATIC
     Dosage: 4 MG PER 100 ML ONCE EVERY 4 WEEKS
     Route: 042
  2. ZOMETA [Suspect]
     Dosage: 4 MG PER 100 ML ONCE EVERY 4 WEEKS
     Route: 042
     Dates: start: 20130709
  3. ZOMETA [Suspect]
     Dosage: 4 MG PER 100 ML ONCE EVERY 4 WEEKS
     Route: 042
     Dates: start: 20131223
  4. ZOMETA [Suspect]
     Dosage: 4 MG PER 100 ML ONCE EVERY 4 WEEKS
     Route: 042
     Dates: start: 20140121

REACTIONS (3)
  - Terminal state [Not Recovered/Not Resolved]
  - Metastases to liver [Not Recovered/Not Resolved]
  - Malaise [Unknown]
